FAERS Safety Report 8074792-7 (Version None)
Quarter: 2012Q1

REPORT INFORMATION
  Report Type: 
  Country: None (occurrence: None)
  Receive Date: 20120126
  Receipt Date: 20120123
  Transmission Date: 20120608
  Serious: No
  Sender: FDA-Public Use
  Company Number: US-PFIZER INC-2012018565

PATIENT
  Sex: Male
  Weight: 72.562 kg

DRUGS (4)
  1. CHANTIX [Suspect]
     Indication: SMOKING CESSATION THERAPY
     Dosage: 0.5 MG, 1X/DAY
     Route: 048
     Dates: start: 20120113
  2. OXYCONTIN [Concomitant]
     Indication: PAIN
     Dosage: UNK
  3. EFFEXOR XR [Concomitant]
     Indication: DEPRESSION
     Dosage: 75 MG, 1X/DAY
  4. CHANTIX [Suspect]
     Dosage: UNK
     Route: 048
     Dates: end: 20120120

REACTIONS (3)
  - VISUAL ACUITY REDUCED [None]
  - NAUSEA [None]
  - DIARRHOEA [None]
